FAERS Safety Report 7313646-8 (Version None)
Quarter: 2011Q1

REPORT INFORMATION
  Report Type: 
  Country: None (occurrence: None)
  Receive Date: 20110225
  Receipt Date: 20110221
  Transmission Date: 20110831
  Serious: Yes (Other)
  Sender: FDA-Public Use
  Company Number: US-PFIZER INC-2011022644

PATIENT
  Sex: Female
  Weight: 98 kg

DRUGS (9)
  1. ACETYLSALICYLIC ACID [Concomitant]
     Dosage: UNK
  2. IBUPROFEN [Concomitant]
     Dosage: UNK
  3. VITAMIN D [Concomitant]
     Dosage: UNK
  4. LEVOTHROID [Concomitant]
     Dosage: UNK
  5. CHANTIX [Suspect]
     Indication: SMOKING CESSATION THERAPY
     Dosage: 0.5 MG, DAILY
     Route: 048
     Dates: start: 20110101, end: 20110101
  6. ACETAMINOPHEN/DIPHENHYDRAMINE [Concomitant]
     Indication: ANALGESIC THERAPY
     Dosage: UNK, DAILY
  7. CHANTIX [Suspect]
     Dosage: UNK
     Dates: start: 20110101, end: 20110220
  8. SIMVASTATIN [Concomitant]
     Indication: BLOOD CHOLESTEROL INCREASED
     Dosage: UNK
  9. CHANTIX [Suspect]
     Dosage: 0.85 MG, 1X/DAY
     Route: 048
     Dates: start: 20110130, end: 20110101

REACTIONS (5)
  - OEDEMA PERIPHERAL [None]
  - PHARYNGEAL OEDEMA [None]
  - DYSPNOEA [None]
  - SWELLING [None]
  - WEIGHT INCREASED [None]
